FAERS Safety Report 4885913-9 (Version None)
Quarter: 2006Q1

REPORT INFORMATION
  Report Type: 
  Country: None (occurrence: None)
  Receive Date: 20060120
  Receipt Date: 20051101
  Transmission Date: 20060701
  Serious: Yes (Death, Hospitalization)
  Sender: FDA-Public Use
  Company Number: US-ROCHE-423200

PATIENT
  Age: 73 Year
  Sex: Female

DRUGS (10)
  1. CAPECITABINE [Suspect]
     Indication: PANCREATIC CARCINOMA
     Dosage: EVERY 12 HOURS ON DAYS 1-5 ON FOR 5.5 WEEKS ON RADIATION THERAPY DAYS.
     Route: 048
     Dates: start: 20050906, end: 20050921
  2. BEVACIZUMAB [Suspect]
     Indication: PANCREATIC CARCINOMA
     Dosage: GIVEN ON DAYS ONE, FIFTEEN AND TWENTYNINE OF CHEMORADIATION WITH CAPECITABINE.
     Route: 042
     Dates: start: 20050906, end: 20050921
  3. NARCOTICS NOS [Concomitant]
  4. TYLENOL (CAPLET) [Concomitant]
  5. PRILOSEC [Concomitant]
  6. COMPAZINE [Concomitant]
  7. CELEXA [Concomitant]
  8. IBUPROFEN [Concomitant]
  9. PROTONIX [Concomitant]
  10. REGLAN [Concomitant]

REACTIONS (7)
  - ASCITES [None]
  - CONFUSIONAL STATE [None]
  - FAT NECROSIS [None]
  - INTRA-ABDOMINAL HAEMORRHAGE [None]
  - PANCREATIC HAEMORRHAGE [None]
  - PANCREATITIS [None]
  - PERFORATION BILE DUCT [None]
